FAERS Safety Report 15218315 (Version 2)
Quarter: 2018Q3

REPORT INFORMATION
  Report Type: Report from Study
  Country: IL (occurrence: IL)
  Receive Date: 20180730
  Receipt Date: 20180907
  Transmission Date: 20181010
  Serious: No
  Sender: FDA-Public Use
  Company Number: IL-AMGEN-ISRSL2018103445

PATIENT
  Age: 65 Year
  Sex: Female

DRUGS (2)
  1. PREDNISONE. [Concomitant]
     Active Substance: PREDNISONE
     Indication: LUPUS NEPHRITIS
  2. PROLIA [Suspect]
     Active Substance: DENOSUMAB
     Indication: OSTEOPOROSIS
     Dosage: UNK
     Route: 065
     Dates: start: 20180708

REACTIONS (7)
  - Dizziness [Recovered/Resolved]
  - Oedema peripheral [Recovered/Resolved]
  - Nerve compression [Unknown]
  - Pyrexia [Recovered/Resolved]
  - Back pain [Unknown]
  - Nausea [Recovered/Resolved]
  - Joint range of motion decreased [Recovered/Resolved]

NARRATIVE: CASE EVENT DATE: 201807
